FAERS Safety Report 24275930 (Version 1)
Quarter: 2024Q3

REPORT INFORMATION
  Report Type: Spontaneous
  Country: FR (occurrence: FR)
  Receive Date: 20240903
  Receipt Date: 20240903
  Transmission Date: 20241017
  Serious: Yes (Congenital Anomaly)
  Sender: AUROBINDO
  Company Number: FR-CHEPLA-2024010665

PATIENT
  Sex: Male
  Weight: 3.378 kg

DRUGS (6)
  1. PREDNISOLONE [Suspect]
     Active Substance: PREDNISOLONE
     Indication: Product used for unknown indication
     Dosage: UNK
     Route: 064
     Dates: start: 20230301, end: 20230505
  2. PREDNISOLONE [Suspect]
     Active Substance: PREDNISOLONE
     Dosage: UNK
     Route: 064
     Dates: start: 20230505, end: 20230602
  3. ENTYVIO [Suspect]
     Active Substance: VEDOLIZUMAB
     Indication: Product used for unknown indication
     Dosage: MOTHER WAS TREATED WITH ENTYVIO? 108 MG AT THE RATE OF ONE SC INJECTION EVERY 2 WEEKS.
     Route: 064
     Dates: start: 20221220, end: 20230301
  4. ENTYVIO [Suspect]
     Active Substance: VEDOLIZUMAB
     Dosage: TREATMENT OF MOTHER, INTENSIFICATION OF ENTYVIO? SC 108 MG ON A WEEKLY BASIS TO ALLOW THE CORTICOSTE
     Route: 064
     Dates: start: 20230301, end: 20230418
  5. ENTYVIO [Suspect]
     Active Substance: VEDOLIZUMAB
     Dosage: MOTHER, SWITCH TO ENTYVIO? IV 300 MG.
     Route: 064
     Dates: start: 20230418, end: 20230505
  6. ENTYVIO [Suspect]
     Active Substance: VEDOLIZUMAB
     Dosage: MOTHER WAS TRATED WITH VEDOLIZUMAB 300 MG IV EVERY 8 WEEKS (STARTED ON 09/05/2023).
     Route: 064
     Dates: start: 20230509, end: 20230602

REACTIONS (1)
  - Tethered oral tissue [Recovered/Resolved]
